FAERS Safety Report 5513824-4 (Version None)
Quarter: 2007Q4

REPORT INFORMATION
  Report Type: 
  Country: None (occurrence: None)
  Receive Date: 20071113
  Receipt Date: 20071031
  Transmission Date: 20080405
  Serious: Yes (Hospitalization, Other)
  Sender: FDA-Public Use
  Company Number: NL-ELI_LILLY_AND_COMPANY-NL200709001138

PATIENT
  Sex: Female

DRUGS (10)
  1. OLANZAPINE [Suspect]
     Indication: PSYCHOTIC DISORDER
     Dosage: 15 MG, UNK
  2. PROZAC [Suspect]
     Indication: DEPRESSION
     Dosage: 30 MG, UNK
  3. METFORMIN HCL [Concomitant]
     Indication: DIABETES MELLITUS
     Dosage: 850 UNK, 3/D
  4. ATENOLOL [Concomitant]
     Indication: HYPERTENSION
     Dosage: 50 UNK, UNK
  5. FUROSEMIDE [Concomitant]
     Indication: FLUID RETENTION
  6. BETAHISTIDINE/BETAHISTIDINE DIHYDROCHLORIDE [Concomitant]
     Indication: MENIERE'S DISEASE
     Dosage: 16 UNK, 2/D
  7. LOSEC [Concomitant]
     Indication: GASTRIC DISORDER
  8. ASCAL [Concomitant]
     Dosage: 38 UNK, UNK
  9. MAGNESIUM OXIDE [Concomitant]
     Indication: CONSTIPATION
     Dosage: 500 MG, UNK
  10. DOMPERIDONE [Concomitant]
     Indication: STOMACH DISCOMFORT
     Dosage: 30 UNK, 3/D

REACTIONS (8)
  - DIABETES MELLITUS [None]
  - DIZZINESS [None]
  - FATIGUE [None]
  - HOSPITALISATION [None]
  - OVERWEIGHT [None]
  - PYREXIA [None]
  - SWELLING FACE [None]
  - TACHYCARDIA [None]
